FAERS Safety Report 20912684 (Version 1)
Quarter: 2022Q2

REPORT INFORMATION
  Report Type: Report from Study
  Country: FR (occurrence: FR)
  Receive Date: 20220603
  Receipt Date: 20220603
  Transmission Date: 20220720
  Serious: Yes (Hospitalization)
  Sender: FDA-Public Use
  Company Number: FR-CELGENE-FRA-20171002823

PATIENT
  Age: 59 Year
  Sex: Male
  Weight: 71.00 kg

DRUGS (37)
  1. POMALIDOMIDE [Suspect]
     Active Substance: POMALIDOMIDE
     Indication: Plasma cell myeloma
     Route: 048
  2. DEXAMETHASONE [Suspect]
     Active Substance: DEXAMETHASONE
     Indication: Plasma cell myeloma
  3. ISATUXIMAB [Suspect]
     Active Substance: ISATUXIMAB
     Indication: Plasma cell myeloma
  4. ESOMEPRAZOLE SODIUM [Concomitant]
     Active Substance: ESOMEPRAZOLE SODIUM
     Dates: start: 20170929
  5. BACTRIM [Concomitant]
     Active Substance: SULFAMETHOXAZOLE\TRIMETHOPRIM
     Dosage: FREQUENCY TEXT: NOT PROVIDED
     Route: 065
     Dates: start: 20170929, end: 20180608
  6. BACTRIM [Concomitant]
     Active Substance: SULFAMETHOXAZOLE\TRIMETHOPRIM
     Indication: Hypoxia
  7. LEUCOVORIN CALCIUM [Concomitant]
     Active Substance: LEUCOVORIN CALCIUM
     Dosage: FREQUENCY TEXT: NOT PROVIDED
     Route: 065
     Dates: start: 20170929
  8. LEUCOVORIN CALCIUM [Concomitant]
     Active Substance: LEUCOVORIN CALCIUM
     Indication: Hypoxia
  9. PENICILLIN V [Concomitant]
     Active Substance: PENICILLIN V
     Dates: start: 20170929
  10. ACETAMINOPHEN [Concomitant]
     Active Substance: ACETAMINOPHEN
     Dates: start: 20170929
  11. GLICLAZIDE [Concomitant]
     Active Substance: GLICLAZIDE
     Dosage: FREQUENCY TEXT: NOT PROVIDED
     Route: 065
     Dates: start: 20171013, end: 20171124
  12. GLICLAZIDE [Concomitant]
     Active Substance: GLICLAZIDE
     Indication: Product used for unknown indication
  13. DEXCHLORPHENIRAMINE MALEATE [Concomitant]
     Active Substance: DEXCHLORPHENIRAMINE MALEATE
     Dates: start: 20170929
  14. ALKALINE [Concomitant]
     Dates: start: 20170929
  15. ALKALINE [Concomitant]
     Indication: Product used for unknown indication
     Dosage: FREQUENCY TEXT: NOT PROVIDED
     Route: 065
     Dates: start: 20170927, end: 20170927
  16. SODIUM CHLORIDE [Concomitant]
     Active Substance: SODIUM CHLORIDE
     Dosage: FREQUENCY TEXT: NOT PROVIDED
     Route: 065
     Dates: start: 20170927, end: 20170927
  17. SODIUM CHLORIDE [Concomitant]
     Active Substance: SODIUM CHLORIDE
     Indication: Product used for unknown indication
  18. ACUPAN [Concomitant]
     Active Substance: NEFOPAM HYDROCHLORIDE
     Dosage: FREQUENCY TEXT: NOT PROVIDED
     Route: 065
     Dates: start: 20170929, end: 20170929
  19. ACUPAN [Concomitant]
     Active Substance: NEFOPAM HYDROCHLORIDE
     Indication: Product used for unknown indication
  20. POTASSIUM CHLORIDE [Concomitant]
     Active Substance: POTASSIUM CHLORIDE
     Dosage: FREQUENCY TEXT: NOT PROVIDED
     Route: 065
     Dates: start: 20170929, end: 20170929
  21. POTASSIUM CHLORIDE [Concomitant]
     Active Substance: POTASSIUM CHLORIDE
     Indication: Product used for unknown indication
  22. AREDIA [Concomitant]
     Active Substance: PAMIDRONATE DISODIUM
     Dosage: FREQUENCY TEXT: NOT PROVIDED
     Route: 065
     Dates: start: 20170928, end: 20170928
  23. AREDIA [Concomitant]
     Active Substance: PAMIDRONATE DISODIUM
     Indication: Product used for unknown indication
  24. RANITIDINE [Concomitant]
     Active Substance: RANITIDINE
     Dosage: FREQUENCY TEXT: NOT PROVIDED
     Route: 065
     Dates: start: 20171013, end: 20171013
  25. RANITIDINE [Concomitant]
     Active Substance: RANITIDINE
     Indication: Product used for unknown indication
     Dosage: FREQUENCY TEXT: NOT PROVIDED
     Route: 065
     Dates: start: 20170929, end: 20170929
  26. FENTANYL [Concomitant]
     Active Substance: FENTANYL
     Dosage: FREQUENCY TEXT: NOT PROVIDED
     Route: 065
     Dates: start: 20170918, end: 20171020
  27. FENTANYL [Concomitant]
     Active Substance: FENTANYL
     Indication: Product used for unknown indication
  28. LEVOTHYROXINE [Concomitant]
     Active Substance: LEVOTHYROXINE
     Dosage: FREQUENCY TEXT: NOT PROVIDED
     Route: 065
     Dates: start: 1998
  29. LEVOTHYROXINE [Concomitant]
     Active Substance: LEVOTHYROXINE
     Indication: Hypoxia
  30. VALACYCLOVIR HYDROCHLORIDE [Concomitant]
     Active Substance: VALACYCLOVIR HYDROCHLORIDE
     Dosage: FREQUENCY TEXT: NOT PROVIDED
     Route: 065
     Dates: start: 20170929
  31. VALACYCLOVIR HYDROCHLORIDE [Concomitant]
     Active Substance: VALACYCLOVIR HYDROCHLORIDE
     Indication: Hypoxia
  32. PLATELETS [Concomitant]
     Active Substance: HUMAN PLATELET, ALLOGENIC
     Indication: Product used for unknown indication
     Dosage: FREQUENCY TEXT: NOT PROVIDED
     Route: 065
     Dates: start: 20171013
  33. PLATELETS [Concomitant]
     Active Substance: HUMAN PLATELET, ALLOGENIC
     Dosage: FREQUENCY TEXT: NOT PROVIDED?1 UNIT
     Route: 065
  34. AUGMENTIN [Concomitant]
     Active Substance: AMOXICILLIN\CLAVULANATE POTASSIUM
     Indication: Bronchitis
     Dosage: FREQUENCY TEXT: NOT PROVIDED
     Route: 065
     Dates: start: 20171003, end: 20171010
  35. PENICILLIN V [Concomitant]
     Active Substance: PENICILLIN V
     Indication: Hypoxia
     Dosage: FREQUENCY TEXT: NOT PROVIDED
     Route: 065
     Dates: start: 20170929
  36. ACETAMINOPHEN [Concomitant]
     Active Substance: ACETAMINOPHEN
     Indication: Hypoxia
     Dosage: FREQUENCY TEXT: NOT PROVIDED
     Route: 065
     Dates: start: 20170929, end: 20170929
  37. ESOMEPRAZOLE [Concomitant]
     Active Substance: ESOMEPRAZOLE
     Indication: Product used for unknown indication
     Dosage: FREQUENCY TEXT: NOT PROVIDED
     Route: 065
     Dates: start: 20170929

REACTIONS (3)
  - Infusion related reaction [Recovered/Resolved]
  - Dyspnoea [Recovered/Resolved]
  - Ear, nose and throat infection [Recovered/Resolved]

NARRATIVE: CASE EVENT DATE: 20170929
